FAERS Safety Report 9166151 (Version 2)
Quarter: 2013Q2

REPORT INFORMATION
  Report Type: Spontaneous
  Country: US (occurrence: US)
  Receive Date: 20130315
  Receipt Date: 20130617
  Transmission Date: 20140414
  Serious: Yes (Other)
  Sender: FDA-Public Use
  Company Number: US-PFIZER INC-2013085087

PATIENT
  Age: 62 Year
  Sex: Female
  Weight: 59 kg

DRUGS (1)
  1. ESTRING [Suspect]
     Indication: HORMONE REPLACEMENT THERAPY
     Dosage: 2 MG, UNK
     Route: 067
     Dates: start: 20130228, end: 20130308

REACTIONS (5)
  - Vaginal haemorrhage [Unknown]
  - Cystitis [Unknown]
  - Urethral injury [Unknown]
  - Dysmenorrhoea [Unknown]
  - Vaginal discharge [Unknown]
